FAERS Safety Report 25537701 (Version 1)
Quarter: 2025Q3

REPORT INFORMATION
  Report Type: Spontaneous
  Country: CN (occurrence: CN)
  Receive Date: 20250710
  Receipt Date: 20250710
  Transmission Date: 20251021
  Serious: Yes (Hospitalization)
  Sender: ABBVIE
  Company Number: CN-ABBOTT-2025A-1400652

PATIENT
  Age: 41 Year
  Sex: Male
  Weight: 75 kg

DRUGS (3)
  1. FENOFIBRATE [Suspect]
     Active Substance: FENOFIBRATE
     Indication: Lipids abnormal
     Route: 048
     Dates: start: 20250516, end: 20250522
  2. SODIUM CHLORIDE [Concomitant]
     Active Substance: SODIUM CHLORIDE
     Indication: Vehicle solution use
     Dates: start: 20250516, end: 20250522
  3. NICOTINIC ACID [Suspect]
     Active Substance: NIACIN
     Indication: Lipids abnormal
     Route: 065
     Dates: start: 20250516, end: 20250522

REACTIONS (2)
  - Hepatic function abnormal [Recovering/Resolving]
  - Condition aggravated [Recovering/Resolving]

NARRATIVE: CASE EVENT DATE: 20250522
